FAERS Safety Report 23242891 (Version 2)
Quarter: 2023Q4

REPORT INFORMATION
  Report Type: Report from Study
  Country: US (occurrence: US)
  Receive Date: 20231129
  Receipt Date: 20231221
  Transmission Date: 20240109
  Serious: Yes (Hospitalization)
  Sender: FDA-Public Use
  Company Number: US-BoehringerIngelheim-2023-BI-255945

PATIENT
  Age: 52 Year
  Sex: Female

DRUGS (1)
  1. OFEV [Suspect]
     Active Substance: NINTEDANIB
     Indication: Idiopathic pulmonary fibrosis
     Route: 048
     Dates: start: 20230825

REACTIONS (29)
  - Abdominal pain [Unknown]
  - Gastrointestinal disorder [Unknown]
  - Dyspnoea [Unknown]
  - Fall [Unknown]
  - Head injury [Unknown]
  - Malaise [Unknown]
  - Concussion [Unknown]
  - Diarrhoea [Unknown]
  - Gastrointestinal pain [Unknown]
  - Spinal pain [Unknown]
  - Nausea [Unknown]
  - Tooth loss [Unknown]
  - Gastrooesophageal reflux disease [Unknown]
  - Fatigue [Unknown]
  - Vomiting [Unknown]
  - Anxiety [Unknown]
  - Abdominal pain upper [Unknown]
  - Hypertension [Unknown]
  - Arthralgia [Unknown]
  - Rotator cuff syndrome [Unknown]
  - Weight decreased [Unknown]
  - Pulmonary pain [Unknown]
  - Foot fracture [Unknown]
  - Back pain [Unknown]
  - Retching [Unknown]
  - Headache [Unknown]
  - Cough [Unknown]
  - Feeling abnormal [Unknown]
  - Oral surgery [Unknown]

NARRATIVE: CASE EVENT DATE: 20230101
